FAERS Safety Report 19477398 (Version 2)
Quarter: 2021Q3

REPORT INFORMATION
  Report Type: Spontaneous
  Country: DE (occurrence: DE)
  Receive Date: 20210630
  Receipt Date: 20210709
  Transmission Date: 20211014
  Serious: Yes (Other)
  Sender: FDA-Public Use
  Company Number: DE-MYLANLABS-2021M1038554

PATIENT
  Age: 41 Year
  Sex: Female

DRUGS (10)
  1. PAROXETINE. [Suspect]
     Active Substance: PAROXETINE
     Indication: NEURODERMATITIS
  2. MONTELUKAST [Suspect]
     Active Substance: MONTELUKAST SODIUM
     Indication: PRURITUS
     Dosage: UNK
     Route: 065
  3. CAPSAICIN. [Suspect]
     Active Substance: CAPSAICIN
     Indication: NEURODERMATITIS
  4. GABAPENTIN. [Suspect]
     Active Substance: GABAPENTIN
     Indication: NEURODERMATITIS
  5. PAROXETINE. [Suspect]
     Active Substance: PAROXETINE
     Indication: PRURITUS
     Dosage: UNK
     Route: 065
  6. MONTELUKAST [Suspect]
     Active Substance: MONTELUKAST SODIUM
     Indication: NEURODERMATITIS
  7. NALTREXONE [Suspect]
     Active Substance: NALTREXONE
     Indication: PRURITUS
     Dosage: 2X50MG (2 TIMES 50MG DAILY)
     Route: 065
     Dates: start: 200511
  8. NALTREXONE [Suspect]
     Active Substance: NALTREXONE
     Indication: NEURODERMATITIS
  9. GABAPENTIN. [Suspect]
     Active Substance: GABAPENTIN
     Indication: PRURITUS
     Dosage: UNK
     Route: 065
  10. CAPSAICIN. [Suspect]
     Active Substance: CAPSAICIN
     Indication: PRURITUS
     Dosage: UNK
     Route: 061

REACTIONS (2)
  - Off label use [Unknown]
  - Drug ineffective for unapproved indication [Unknown]
